FAERS Safety Report 6787795-7 (Version None)
Quarter: 2010Q2

REPORT INFORMATION
  Report Type: 
  Country: None (occurrence: None)
  Receive Date: 20100621
  Receipt Date: 20100608
  Transmission Date: 20101027
  Serious: Yes (Hospitalization)
  Sender: FDA-Public Use
  Company Number: 236852K09USA

PATIENT
  Age: 64 Year
  Sex: Female
  Weight: 72 kg

DRUGS (5)
  1. REBIF [Suspect]
     Indication: MULTIPLE SCLEROSIS
     Dosage: 44 MCG, 3 IN 1 WK, SUBCUTANEOUS
     Route: 058
     Dates: start: 20071202, end: 20090601
  2. EXFORGE [Suspect]
     Indication: HYPERTENSION
     Dates: end: 20090101
  3. EXFORGE [Suspect]
     Indication: HYPERTENSION
     Dates: start: 20090101
  4. LYRICA [Concomitant]
  5. CRESTOR [Concomitant]

REACTIONS (8)
  - BALANCE DISORDER [None]
  - CHEST PAIN [None]
  - DIZZINESS [None]
  - DYSPNOEA [None]
  - GASTROOESOPHAGEAL REFLUX DISEASE [None]
  - HIATUS HERNIA [None]
  - HYPOTENSION [None]
  - MEMORY IMPAIRMENT [None]
